FAERS Safety Report 9104598 (Version 6)
Quarter: 2014Q1

REPORT INFORMATION
  Report Type: Spontaneous
  Country: US (occurrence: US)
  Receive Date: 20130220
  Receipt Date: 20140109
  Transmission Date: 20141002
  Serious: Yes (Hospitalization, Disabling, Other)
  Sender: FDA-Public Use
  Company Number: US-MERCK-1302USA008756

PATIENT
  Sex: Female

DRUGS (7)
  1. FOSAMAX [Suspect]
     Indication: OSTEOPOROSIS
     Dosage: 70 MG, QW
     Route: 048
     Dates: start: 20030101, end: 20100312
  2. FOSAMAX [Suspect]
     Indication: OSTEOPENIA
  3. ALENDRONATE SODIUM [Suspect]
     Indication: BONE LOSS
     Dosage: 70 MG, QW
     Route: 048
     Dates: start: 2008, end: 20100312
  4. ALENDRONATE SODIUM [Suspect]
     Indication: OSTEOPENIA
  5. HYZAAR [Concomitant]
     Indication: HYPERTENSION
     Dosage: 100/25 MG
  6. LIPITOR [Concomitant]
     Indication: HYPERCHOLESTEROLAEMIA
  7. ATORVASTATIN [Concomitant]
     Indication: HYPERCHOLESTEROLAEMIA

REACTIONS (13)
  - Femur fracture [Recovering/Resolving]
  - Intramedullary rod insertion [Unknown]
  - Haemorrhagic anaemia [Recovering/Resolving]
  - Transfusion [Recovered/Resolved]
  - Adverse event [Not Recovered/Not Resolved]
  - Macular degeneration [Unknown]
  - Arthritis [Unknown]
  - Uterine leiomyoma [Unknown]
  - Osteitis [Unknown]
  - Osteoarthritis [Unknown]
  - Spinal osteoarthritis [Unknown]
  - Bone density decreased [Unknown]
  - Vascular calcification [Unknown]
